FAERS Safety Report 4781893-5 (Version None)
Quarter: 2005Q3

REPORT INFORMATION
  Report Type: 
  Country: None (occurrence: None)
  Receive Date: 20050927
  Receipt Date: 20050915
  Transmission Date: 20060218
  Serious: Yes (Hospitalization, Other)
  Sender: FDA-Public Use
  Company Number: 2005003617

PATIENT
  Age: 28 Year
  Sex: Male

DRUGS (4)
  1. NEURONTIN [Suspect]
     Indication: ANXIETY
     Dosage: 3200 MG (800 MG, IN 1 D), ORAL
     Route: 048
     Dates: start: 20010620
  2. ATIVAN [Concomitant]
  3. CELEXA [Concomitant]
  4. AMBIEN [Concomitant]

REACTIONS (16)
  - ADJUSTMENT DISORDER [None]
  - AFFECTIVE DISORDER [None]
  - BIPOLAR I DISORDER [None]
  - CONDUCT DISORDER [None]
  - DEPRESSED MOOD [None]
  - DRUG DEPENDENCE [None]
  - GASTROOESOPHAGEAL REFLUX DISEASE [None]
  - GUN SHOT WOUND [None]
  - HAEMOTHORAX [None]
  - HOMICIDAL IDEATION [None]
  - INTERMITTENT EXPLOSIVE DISORDER [None]
  - LUNG INJURY [None]
  - MAJOR DEPRESSION [None]
  - PSYCHOTIC DISORDER [None]
  - SUICIDAL IDEATION [None]
  - SUICIDE ATTEMPT [None]
